FAERS Safety Report 22354723 (Version 2)
Quarter: 2023Q2

REPORT INFORMATION
  Report Type: Report from Study
  Country: US (occurrence: US)
  Receive Date: 20230523
  Receipt Date: 20230621
  Transmission Date: 20230722
  Serious: Yes (Other)
  Sender: FDA-Public Use
  Company Number: US-MIRATI-MT2023PM03800

PATIENT

DRUGS (16)
  1. KRAZATI [Suspect]
     Active Substance: ADAGRASIB
     Indication: Lung neoplasm malignant
     Dosage: 600 MG, BID
     Route: 048
     Dates: start: 20230410, end: 20230413
  2. KRAZATI [Suspect]
     Active Substance: ADAGRASIB
     Dosage: 200 MG, BID
     Route: 048
  3. Probiotic pearls adult 50+ [Concomitant]
     Dosage: 1 TABLET BID
     Route: 048
  4. ALBUTEROL SULFATE [Concomitant]
     Active Substance: ALBUTEROL SULFATE
     Dosage: INHALE 2 PUFFS EVERY 4-6 HOURS AS NEEDED
  5. ASCORBIC ACID [Concomitant]
     Active Substance: ASCORBIC ACID
     Dosage: 1000 MG, QD (1 TABLET QD)
     Route: 048
  6. B12 ACTIVE [Concomitant]
     Dosage: 3000 UNK, QD (3 TABLETS QD)
     Route: 060
  7. CALCIUM [Concomitant]
     Active Substance: CALCIUM
     Dosage: 333 MG, QD (1 TABLET DAILY)
     Route: 048
  8. COMPAZINE [Concomitant]
     Active Substance: PROCHLORPERAZINE MALEATE
     Dosage: 10 MG, QID PRN
     Route: 048
  9. FOLIC ACID [Concomitant]
     Active Substance: FOLIC ACID
     Dosage: 400 UNK, QD (400MCG)
     Route: 048
  10. ACETAMINOPHEN\HYDROCODONE [Concomitant]
     Active Substance: ACETAMINOPHEN\HYDROCODONE
     Dosage: 1-2 TABLETS EVERY 6 HOURS AS NEEDED
     Route: 048
  11. HYDROCORTISONE [Concomitant]
     Active Substance: HYDROCORTISONE
     Dosage: APPLY BID TO AFFECTED AREAS AS NEEDED
     Route: 061
  12. LEVSIN [Concomitant]
     Active Substance: HYOSCYAMINE SULFATE
     Dosage: 1 TABLET TID
     Route: 060
  13. HYDROXYZINE HYDROCHLORIDE [Concomitant]
     Active Substance: HYDROXYZINE HYDROCHLORIDE
     Dosage: 0.5-1 TABLET BY MOUTH Q6H PRN
     Route: 048
  14. LIDOCAINE 5% EXTRA [Concomitant]
     Dosage: AAPLY 1 PATCH QD
     Route: 062
  15. VITAMIN D3 [Concomitant]
     Active Substance: CHOLECALCIFEROL
     Dosage: 50000 U ONCE A WEEK
     Route: 048
  16. SENNA [Concomitant]
     Active Substance: SENNA LEAF\SENNOSIDES\SENNOSIDES A AND B
     Indication: Constipation
     Dosage: 1 TABLET BID PRN
     Route: 048

REACTIONS (10)
  - Ventricular extrasystoles [Unknown]
  - Gastrointestinal pain [Unknown]
  - Pain [Unknown]
  - Malaise [Unknown]
  - Fatigue [Unknown]
  - Asthenia [Unknown]
  - Diarrhoea [Recovered/Resolved]
  - Dyspnoea [Recovering/Resolving]
  - Nausea [Unknown]
  - Vomiting [Unknown]

NARRATIVE: CASE EVENT DATE: 20230410
